FAERS Safety Report 5672769-X (Version None)
Quarter: 2008Q2

REPORT INFORMATION
  Report Type: 
  Country: None (occurrence: None)
  Receive Date: 20080219
  Receipt Date: 20080121
  Transmission Date: 20081010
  Serious: No
  Sender: FDA-Public Use
  Company Number: TPA2008A00099

PATIENT
  Age: 75 Year
  Sex: Female
  Weight: 49.8957 kg

DRUGS (6)
  1. ROZEREM [Suspect]
     Indication: INSOMNIA
     Dosage: 8 MG, QHS PRN, PER ORAL
     Route: 048
     Dates: start: 20071201, end: 20080121
  2. SYNTHROID [Suspect]
     Indication: DRUG USE FOR UNKNOWN INDICATION
  3. COZAAR [Concomitant]
  4. ASPIRIN [Concomitant]
  5. VITAMINS (VITAMINS) (TABLETS) [Concomitant]
  6. ALPHAGAN 0.1% (BRIMONIDINE TARTRATE) [Concomitant]

REACTIONS (4)
  - DECREASED ACTIVITY [None]
  - FEELING JITTERY [None]
  - INITIAL INSOMNIA [None]
  - SOMNOLENCE [None]
